APPROVED DRUG PRODUCT: PERIOGARD
Active Ingredient: CHLORHEXIDINE GLUCONATE
Strength: 0.12%
Dosage Form/Route: SOLUTION;DENTAL
Application: A203212 | Product #001 | TE Code: AT
Applicant: COLGATE-PALMOLIVE CO
Approved: Jan 28, 2016 | RLD: No | RS: No | Type: RX